FAERS Safety Report 18726283 (Version 3)
Quarter: 2021Q1

REPORT INFORMATION
  Report Type: Spontaneous
  Country: AU (occurrence: AU)
  Receive Date: 20210111
  Receipt Date: 20210218
  Transmission Date: 20210419
  Serious: Yes (Other)
  Sender: FDA-Public Use
  Company Number: AU-PFIZER INC-2020520318

PATIENT
  Age: 25 Year
  Sex: Female

DRUGS (3)
  1. PREDNISOLONE. [Concomitant]
     Active Substance: PREDNISOLONE
     Dosage: 10?15 MG, DAILY
  2. METHOTREXATE SODIUM. [Suspect]
     Active Substance: METHOTREXATE SODIUM
     Indication: AUTOINFLAMMATORY DISEASE
     Dosage: 10?20MG/WEEK
  3. ANAKINRA [Concomitant]
     Active Substance: ANAKINRA
     Dosage: UNK UNK, DAILY

REACTIONS (8)
  - Treatment failure [Unknown]
  - Red blood cell sedimentation rate increased [Unknown]
  - Panniculitis [Unknown]
  - Myositis [Unknown]
  - Fasciitis [Unknown]
  - Affective disorder [Unknown]
  - C-reactive protein increased [Unknown]
  - Off label use [Unknown]
